FAERS Safety Report 7365373-9 (Version None)
Quarter: 2011Q1

REPORT INFORMATION
  Report Type: 
  Country: None (occurrence: None)
  Receive Date: 20110322
  Receipt Date: 20110317
  Transmission Date: 20110831
  Serious: No
  Sender: FDA-Public Use
  Company Number: US-BIOGENIDEC-2011BI010376

PATIENT
  Age: 54 Year
  Sex: Male

DRUGS (2)
  1. TYSABRI [Suspect]
     Indication: MULTIPLE SCLEROSIS
     Route: 042
     Dates: start: 20090529
  2. TYSABRI [Suspect]
     Route: 042
     Dates: start: 20080721, end: 20081212

REACTIONS (2)
  - ASTHENIA [None]
  - PERONEAL NERVE PALSY [None]
